FAERS Safety Report 24709467 (Version 1)
Quarter: 2024Q4

REPORT INFORMATION
  Report Type: Spontaneous
  Country: BR (occurrence: BR)
  Receive Date: 20241209
  Receipt Date: 20241209
  Transmission Date: 20250114
  Serious: Yes (Hospitalization)
  Sender: ULTRAGENYX PHARMACEUTICAL
  Company Number: BR-ULTRAGENYX PHARMACEUTICAL INC.-BR-UGX-24-02300

PATIENT
  Age: 10 Year

DRUGS (1)
  1. DOJOLVI [Suspect]
     Active Substance: TRIHEPTANOIN
     Indication: Product used for unknown indication
     Dosage: UNK

REACTIONS (2)
  - Tonsillitis [Recovered/Resolved]
  - Ear infection [Recovered/Resolved]
